FAERS Safety Report 5166804-5 (Version None)
Quarter: 2006Q4

REPORT INFORMATION
  Report Type: 
  Country: None (occurrence: None)
  Receive Date: 20061129
  Receipt Date: 20061116
  Transmission Date: 20070319
  Serious: Yes (Death)
  Sender: FDA-Public Use
  Company Number: FABR-11745

PATIENT
  Age: 28 Year
  Sex: Male
  Weight: 47 kg

DRUGS (1)
  1. FABRAZYME [Suspect]
     Indication: FABRY'S DISEASE
     Dosage: 50 MG IV
     Route: 042
     Dates: start: 20061101, end: 20061101

REACTIONS (7)
  - ASTHENIA [None]
  - CARDIOVASCULAR DISORDER [None]
  - DYSPNOEA [None]
  - MALAISE [None]
  - SEPSIS [None]
  - STAPHYLOCOCCAL BACTERAEMIA [None]
  - UPPER RESPIRATORY TRACT INFECTION [None]
